FAERS Safety Report 6780024-X (Version None)
Quarter: 2010Q2

REPORT INFORMATION
  Report Type: 
  Country: None (occurrence: None)
  Receive Date: 20100618
  Receipt Date: 20100607
  Transmission Date: 20101027
  Serious: Yes (Hospitalization)
  Sender: FDA-Public Use
  Company Number: DE-ELI_LILLY_AND_COMPANY-DE201006002324

PATIENT
  Age: 67 Year
  Sex: Female

DRUGS (11)
  1. ZYPREXA [Suspect]
     Indication: BIPOLAR DISORDER
     Dosage: 7.5 MG, UNK
     Route: 048
     Dates: start: 20090530, end: 20090727
  2. ZYPREXA [Suspect]
     Dosage: 10 MG, UNK
     Route: 048
     Dates: start: 20090728, end: 20090917
  3. ZYPREXA [Suspect]
     Dosage: 7.5 MG, UNK
     Route: 048
     Dates: start: 20090918, end: 20091026
  4. ZYPREXA [Suspect]
     Dosage: 5 MG, UNK
     Route: 048
     Dates: start: 20091027, end: 20100111
  5. ZYPREXA [Suspect]
     Dosage: 2.5 MG, UNK
     Route: 048
     Dates: start: 20100112
  6. ERGENYL [Concomitant]
     Dosage: 300 MG, UNK
     Route: 048
     Dates: start: 20090602, end: 20090602
  7. ERGENYL [Concomitant]
     Dosage: 600 MG, UNK
     Route: 048
     Dates: start: 20090603, end: 20090609
  8. ERGENYL [Concomitant]
     Dosage: 1050 MG, UNK
     Route: 048
     Dates: start: 20090610, end: 20090610
  9. ERGENYL [Concomitant]
     Dosage: 1200 MG, UNK
     Route: 048
     Dates: start: 20090611
  10. DIOVAN HCT [Concomitant]
     Dosage: 1 D/F, UNK
     Route: 048
  11. ZYLORIC [Concomitant]
     Dosage: 100 MG, UNK
     Route: 048

REACTIONS (5)
  - ASTHENIA [None]
  - BLOOD CREATININE INCREASED [None]
  - HAEMOGLOBIN DECREASED [None]
  - POLYNEUROPATHY [None]
  - RED BLOOD CELL COUNT DECREASED [None]
